FAERS Safety Report 6133217-9 (Version None)
Quarter: 2009Q1

REPORT INFORMATION
  Report Type: 
  Country: None (occurrence: None)
  Receive Date: 20090324
  Receipt Date: 20090324
  Transmission Date: 20090719
  Serious: Yes (Other)
  Sender: FDA-Public Use
  Company Number: None

PATIENT
  Age: 68 Year
  Sex: Female
  Weight: 63.5036 kg

DRUGS (1)
  1. SIMVASTATIN [Suspect]
     Indication: BLOOD CHOLESTEROL INCREASED
     Dosage: 20MG DAILY PO
     Route: 048
     Dates: start: 20010505, end: 20090323

REACTIONS (1)
  - ALOPECIA [None]
